FAERS Safety Report 19483749 (Version 2)
Quarter: 2022Q1

REPORT INFORMATION
  Report Type: Spontaneous
  Country: GB (occurrence: GB)
  Receive Date: 20210701
  Receipt Date: 20220217
  Transmission Date: 20220423
  Serious: Yes (Death, Other)
  Sender: FDA-Public Use
  Company Number: None

PATIENT
  Age: 78 Year
  Sex: Male
  Weight: 108 kg

DRUGS (5)
  1. METHOTREXATE SODIUM [Suspect]
     Active Substance: METHOTREXATE SODIUM
     Indication: Eczema
     Dosage: 15 MG, WEEKLY
     Route: 048
     Dates: start: 20210301, end: 20210407
  2. METHOTREXATE SODIUM [Suspect]
     Active Substance: METHOTREXATE SODIUM
     Dosage: 22.5 MG, WEEKLY
     Route: 048
     Dates: start: 20210408, end: 20210607
  3. BENDROFLUMETHIAZIDE [Concomitant]
     Active Substance: BENDROFLUMETHIAZIDE
  4. CANDESARTAN [Concomitant]
     Active Substance: CANDESARTAN
  5. FOLIC ACID [Concomitant]
     Active Substance: FOLIC ACID

REACTIONS (9)
  - Pneumonitis [Fatal]
  - Respiratory failure [Fatal]
  - Psoriasis [Fatal]
  - Subarachnoid haemorrhage [Not Recovered/Not Resolved]
  - Syncope [Not Recovered/Not Resolved]
  - Cough [Not Recovered/Not Resolved]
  - Lethargy [Not Recovered/Not Resolved]
  - Dyspnoea exertional [Not Recovered/Not Resolved]
  - Off label use [Unknown]

NARRATIVE: CASE EVENT DATE: 20210301
